FAERS Safety Report 7723857-5 (Version None)
Quarter: 2011Q3

REPORT INFORMATION
  Report Type: 
  Country: None (occurrence: None)
  Receive Date: 20110901
  Receipt Date: 20110825
  Transmission Date: 20111222
  Serious: Yes (Death)
  Sender: FDA-Public Use
  Company Number: US-CELGENEUS-163-21880-11053514

PATIENT
  Sex: Male

DRUGS (9)
  1. JANTOVEN [Concomitant]
     Route: 065
  2. METFORMIN [Concomitant]
     Route: 065
  3. FOLTX [Concomitant]
     Route: 065
  4. BENTYL [Concomitant]
     Route: 065
  5. REVLIMID [Suspect]
     Indication: MULTIPLE MYELOMA
     Dosage: 12.5 MILLIGRAM
     Route: 048
     Dates: start: 20091201, end: 20110101
  6. CARAFATE [Concomitant]
     Route: 065
  7. TENORMIN [Concomitant]
     Route: 065
  8. LIPITOR [Concomitant]
     Route: 065
  9. LASIX [Concomitant]
     Route: 065

REACTIONS (3)
  - PNEUMONIA [None]
  - RESPIRATORY FAILURE [None]
  - CARDIAC ARREST [None]
